FAERS Safety Report 18305252 (Version 1)
Quarter: 2020Q3

REPORT INFORMATION
  Report Type: Spontaneous
  Country: DK (occurrence: DK)
  Receive Date: 20200923
  Receipt Date: 20200923
  Transmission Date: 20201103
  Serious: Yes (Life-Threatening)
  Sender: FDA-Public Use
  Company Number: DK-PFIZER INC-2020363410

PATIENT

DRUGS (1)
  1. ZESSLY [Suspect]
     Active Substance: INFLIXIMAB
     Dosage: UNK
     Route: 065

REACTIONS (1)
  - Anaphylactic shock [Unknown]
